FAERS Safety Report 10578778 (Version 6)
Quarter: 2016Q2

REPORT INFORMATION
  Report Type: Report from Study
  Country: JP (occurrence: JP)
  Receive Date: 20141112
  Receipt Date: 20160502
  Transmission Date: 20160815
  Serious: Yes (Death, Other)
  Sender: FDA-Public Use
  Company Number: JP-INCYTE CORPORATION-2014IN003139

PATIENT
  Age: 79 Year
  Sex: Male
  Weight: 57 kg

DRUGS (19)
  1. FLUITRAN [Concomitant]
     Active Substance: TRICHLORMETHIAZIDE
     Indication: CARDIAC FAILURE
     Dosage: 1 UNK, UNK
     Route: 048
     Dates: start: 20141006
  2. ZYLORIC [Concomitant]
     Active Substance: ALLOPURINOL
     Indication: PRODUCT USED FOR UNKNOWN INDICATION
     Dosage: 100 UNK, UNK
     Route: 048
     Dates: start: 20141006
  3. KALGUT [Concomitant]
     Active Substance: DENOPAMINE
     Indication: ANGINA PECTORIS
     Dosage: 15 UNK, UNK
     Route: 048
     Dates: start: 20141006
  4. LUPRAC [Concomitant]
     Active Substance: TORSEMIDE
     Indication: CARDIAC FAILURE
     Dosage: 4 UNK, UNK
     Route: 048
     Dates: start: 20141006
  5. PLETAAL [Concomitant]
     Active Substance: CILOSTAZOL
     Indication: PRODUCT USED FOR UNKNOWN INDICATION
     Dosage: 100 UNK, UNK
     Route: 048
  6. JAKAFI [Suspect]
     Active Substance: RUXOLITINIB
     Indication: MYELOFIBROSIS
     Dosage: 20 MG, BID
     Route: 048
     Dates: start: 20141001, end: 20141014
  7. LASIX [Concomitant]
     Active Substance: FUROSEMIDE
     Indication: CARDIAC FAILURE
     Dosage: 10 UNK, UNK
     Route: 048
     Dates: start: 20141006
  8. ARGAMATE [Concomitant]
     Active Substance: CALCIUM POLYSTYRENE SULFONATE
     Indication: HYPERKALAEMIA
     Dosage: 25 UNK, UNK
     Route: 065
     Dates: start: 20141006
  9. FEBURIC [Concomitant]
     Active Substance: FEBUXOSTAT
     Indication: PRODUCT USED FOR UNKNOWN INDICATION
     Dosage: 10 UNK, UNK
     Route: 048
     Dates: start: 20141029
  10. DIART [Concomitant]
     Active Substance: AZOSEMIDE
     Indication: CARDIAC FAILURE
     Dosage: 30 UNK, UNK
     Route: 048
     Dates: start: 20141006
  11. TSUMURA DAISAIKOTOU [Concomitant]
     Indication: PRODUCT USED FOR UNKNOWN INDICATION
     Dosage: 7.5 UNK, UNK
     Route: 048
     Dates: start: 20141029
  12. SAMSCA [Concomitant]
     Active Substance: TOLVAPTAN
     Indication: CARDIAC FAILURE
     Dosage: 15 UNK, UNK
     Route: 048
     Dates: start: 20141006
  13. PROTECADIN [Concomitant]
     Active Substance: LAFUTIDINE
     Indication: PRODUCT USED FOR UNKNOWN INDICATION
     Dosage: 20 UNK, UNK
     Route: 048
     Dates: start: 20141029
  14. JAKAFI [Suspect]
     Active Substance: RUXOLITINIB
     Dosage: 10 MG, BID
     Route: 048
     Dates: start: 20141015, end: 20141029
  15. ARTIST [Concomitant]
     Active Substance: CARVEDILOL
     Indication: SYMPATHOLYSIS
     Dosage: 5 UNK, UNK
     Route: 048
     Dates: start: 20141006
  16. ROZEREM [Concomitant]
     Active Substance: RAMELTEON
     Indication: PRODUCT USED FOR UNKNOWN INDICATION
     Dosage: 8 UNK, UNK
     Route: 048
     Dates: start: 20141029
  17. HEAVY MAGNESIUM OXIDE [Concomitant]
     Indication: PRODUCT USED FOR UNKNOWN INDICATION
     Dosage: 3 UNK, UNK
     Route: 048
     Dates: start: 20141006
  18. ACARDI [Concomitant]
     Indication: ANGINA PECTORIS
     Dosage: 5 UNK, UNK
     Route: 048
     Dates: start: 20141006
  19. TRANSAMIN [Concomitant]
     Active Substance: TRANEXAMIC ACID
     Indication: PRODUCT USED FOR UNKNOWN INDICATION
     Dosage: 1500 UNK, UNK
     Route: 048
     Dates: start: 20141029

REACTIONS (4)
  - Aspartate aminotransferase increased [Unknown]
  - Haemoglobin decreased [Unknown]
  - Arrhythmia [Fatal]
  - Acute myocardial infarction [Fatal]

NARRATIVE: CASE EVENT DATE: 20141015
